FAERS Safety Report 5275055-5 (Version None)
Quarter: 2007Q1

REPORT INFORMATION
  Report Type: 
  Country: None (occurrence: None)
  Receive Date: 20070326
  Receipt Date: 20070312
  Transmission Date: 20070707
  Serious: Yes (Life-Threatening, Hospitalization)
  Sender: FDA-Public Use
  Company Number: HQWYE800115MAR07

PATIENT
  Age: 52 Year
  Sex: Female

DRUGS (1)
  1. VENLAFAXINE HYDROCHLORIDE [Suspect]
     Dosage: OVERDOSE AMOUNT 5 G
     Route: 048

REACTIONS (11)
  - BUNDLE BRANCH BLOCK RIGHT [None]
  - CARDIOTOXICITY [None]
  - COMA [None]
  - CONVULSION [None]
  - HYPERREFLEXIA [None]
  - HYPERTONIA [None]
  - HYPOTENSION [None]
  - MYDRIASIS [None]
  - MYOCLONUS [None]
  - OVERDOSE [None]
  - VENTRICULAR HYPOKINESIA [None]
